FAERS Safety Report 10925955 (Version 1)
Quarter: 2015Q1

REPORT INFORMATION
  Report Type: Spontaneous
  Country: US (occurrence: US)
  Receive Date: 20150318
  Receipt Date: 20150318
  Transmission Date: 20150721
  Serious: No
  Sender: FDA-Public Use
  Company Number: US-ENDO PHARMACEUTICALS INC.-PRIM20140006

PATIENT
  Age: 79 Year
  Sex: Female

DRUGS (1)
  1. PRIMIDONE TABLETS 50MG [Suspect]
     Active Substance: PRIMIDONE
     Indication: TREMOR
     Route: 048

REACTIONS (1)
  - Drug ineffective [Not Recovered/Not Resolved]

NARRATIVE: CASE EVENT DATE: 201406
